FAERS Safety Report 7685124-8 (Version None)
Quarter: 2011Q3

REPORT INFORMATION
  Report Type: 
  Country: None (occurrence: None)
  Receive Date: 20110729
  Receipt Date: 20110719
  Transmission Date: 20111222
  Serious: Yes (Other)
  Sender: FDA-Public Use
  Company Number: GAM-024-11-PT

PATIENT
  Age: 63 Year
  Sex: Male

DRUGS (2)
  1. OCTAGAM [Suspect]
     Indication: PEMPHIGUS
     Dosage: INTRAVENOUS
     Route: 042
  2. ALTEPLASE [Suspect]
     Indication: THROMBOLYSIS
     Dosage: 0.9 MG/KG - 1 X 1/TOTAL INTRAVENOUS
     Route: 042

REACTIONS (5)
  - BLOOD PRESSURE INCREASED [None]
  - INCORRECT DRUG ADMINISTRATION RATE [None]
  - CEREBRAL ISCHAEMIA [None]
  - CEREBROVASCULAR ACCIDENT [None]
  - CEREBRAL HAEMATOMA [None]
